FAERS Safety Report 19088180 (Version 1)
Quarter: 2021Q2

REPORT INFORMATION
  Report Type: Spontaneous
  Country: US (occurrence: US)
  Receive Date: 20210402
  Receipt Date: 20210402
  Transmission Date: 20210717
  Serious: Yes (Other)
  Sender: FDA-Public Use
  Company Number: None

PATIENT
  Age: 58 Year
  Sex: Male
  Weight: 105.69 kg

DRUGS (13)
  1. ALBUTEROL. [Concomitant]
     Active Substance: ALBUTEROL
  2. ZINC. [Concomitant]
     Active Substance: ZINC
  3. C [Concomitant]
  4. MONTELUKAST [Concomitant]
     Active Substance: MONTELUKAST SODIUM
  5. URO?CIT?K [Concomitant]
  6. TURMERIC [Concomitant]
     Active Substance: HERBALS\TURMERIC
  7. VIT D [Concomitant]
     Active Substance: VITAMIN D NOS
  8. AMLIPODINE [Concomitant]
  9. GLUCOSAMINE AND CHRONDRSOITIN [Concomitant]
  10. QVAR REDIHALER [Suspect]
     Active Substance: BECLOMETHASONE DIPROPIONATE
     Indication: ASTHMA
     Dosage: ?          QUANTITY:2 DF DOSAGE FORM;?
     Route: 055
     Dates: start: 20180326, end: 20210327
  11. LISINOPRIL. [Concomitant]
     Active Substance: LISINOPRIL
  12. ALLOPURINOL. [Concomitant]
     Active Substance: ALLOPURINOL
  13. PRILOSEC [Concomitant]
     Active Substance: OMEPRAZOLE MAGNESIUM

REACTIONS (4)
  - Device issue [None]
  - Product quality issue [None]
  - Asthma [None]
  - Drug dose omission by device [None]

NARRATIVE: CASE EVENT DATE: 20210327
